FAERS Safety Report 21970625 (Version 1)
Quarter: 2023Q1

REPORT INFORMATION
  Report Type: Spontaneous
  Country: CN (occurrence: CN)
  Receive Date: 20230209
  Receipt Date: 20230209
  Transmission Date: 20230417
  Serious: Yes (Other)
  Sender: FDA-Public Use
  Company Number: CN-KYOWAKIRIN-2023AKK001719

PATIENT
  Age: 60 Year
  Sex: Female

DRUGS (4)
  1. FILGRASTIM [Suspect]
     Active Substance: FILGRASTIM
     Indication: White blood cell count increased
     Dosage: 300 MICROGRAM, QD
     Route: 058
     Dates: start: 20211208, end: 20211209
  2. FILGRASTIM [Suspect]
     Active Substance: FILGRASTIM
     Dosage: 225 MICROGRAM, QD
     Route: 058
     Dates: start: 20211209, end: 20211211
  3. FILGRASTIM [Suspect]
     Active Substance: FILGRASTIM
     Dosage: 300 MICROGRAM, BID
     Route: 058
     Dates: start: 20211211, end: 20211215
  4. FILGRASTIM [Suspect]
     Active Substance: FILGRASTIM
     Dosage: 75 MICROGRAM, QD
     Route: 058
     Dates: start: 20211211, end: 20211215

REACTIONS (2)
  - Myocardial injury [Recovering/Resolving]
  - Off label use [Unknown]

NARRATIVE: CASE EVENT DATE: 20221210
